FAERS Safety Report 4487441-1 (Version None)
Quarter: 2004Q4

REPORT INFORMATION
  Report Type: 
  Country: None (occurrence: None)
  Receive Date: 20041022
  Receipt Date: 20041006
  Transmission Date: 20050328
  Serious: Yes (Death)
  Sender: FDA-Public Use
  Company Number: 2004-BP-09350RO

PATIENT
  Age: 1 Month
  Sex: Male
  Weight: 4.1 kg

DRUGS (1)
  1. DIGOXIN [Suspect]
     Dosage: 2 MG , IV
     Route: 042

REACTIONS (1)
  - OVERDOSE [None]
